FAERS Safety Report 20968104 (Version 2)
Quarter: 2022Q3

REPORT INFORMATION
  Report Type: Spontaneous
  Country: ES (occurrence: ES)
  Receive Date: 20220616
  Receipt Date: 20220711
  Transmission Date: 20221027
  Serious: Yes (Hospitalization, Other)
  Sender: FDA-Public Use
  Company Number: ES-MACLEODS PHARMA UK LTD-MAC2022036118

PATIENT

DRUGS (16)
  1. CLOPIDOGREL [Interacting]
     Active Substance: CLOPIDOGREL BISULFATE
     Indication: Cerebrovascular accident
     Dosage: 75 MILLIGRAM, QD (1/0/0)
     Route: 048
  2. CLOPIDOGREL [Interacting]
     Active Substance: CLOPIDOGREL BISULFATE
     Indication: Cardiovascular disorder
  3. DONEPEZIL [Suspect]
     Active Substance: DONEPEZIL
     Indication: Dementia
     Dosage: 10 MILLIGRAM, QD (1/0/0), 1 YEAR
     Route: 048
  4. METFORMIN [Interacting]
     Active Substance: METFORMIN HYDROCHLORIDE
     Indication: Diabetes mellitus
     Dosage: 850 MILLIGRAM, BID (1/0/1)
     Route: 065
  5. METFORMIN [Interacting]
     Active Substance: METFORMIN HYDROCHLORIDE
     Dosage: 1 GRAM, BID (1/0/1)
     Route: 048
  6. PANTOPRAZOLE SODIUM [Interacting]
     Active Substance: PANTOPRAZOLE SODIUM
     Indication: Gastrointestinal disorder prophylaxis
     Dosage: 40 MILLIGRAM, QD (1/0/0)
     Route: 048
  7. ACETAMINOPHEN [Interacting]
     Active Substance: ACETAMINOPHEN
     Indication: Pain
     Dosage: 1000 MILLIGRAM,AS NECESSARY, ON DEMAND STRENGTH: 1 GRAM)
     Route: 048
  8. ACETAMINOPHEN [Interacting]
     Active Substance: ACETAMINOPHEN
     Indication: Cerebrovascular accident
  9. REPAGLINIDE [Interacting]
     Active Substance: REPAGLINIDE
     Indication: Diabetes mellitus
     Dosage: 2 MILLIGRAM, TID  (2/2/1) ONE IN 5 DAYS
     Route: 048
  10. PREDNISONE [Interacting]
     Active Substance: PREDNISONE
     Indication: Gastrointestinal inflammation
     Dosage: UNK, BID (0.5/0.5)
     Route: 048
  11. PREDNISONE [Interacting]
     Active Substance: PREDNISONE
     Indication: Inflammatory bowel disease
  12. FOLIC ACID [Concomitant]
     Active Substance: FOLIC ACID
     Indication: Vitamin B complex deficiency
     Dosage: 5 MILLIGRAM (0/1/0)
     Route: 065
  13. FOLIC ACID [Concomitant]
     Active Substance: FOLIC ACID
     Indication: Folate deficiency
  14. VILDAGLIPTIN [Concomitant]
     Active Substance: VILDAGLIPTIN
     Indication: Diabetes mellitus
     Dosage: 50 MILLIGRAM, BID (0/1/1)
     Route: 048
  15. Broth/vit D3 [Concomitant]
     Indication: Steroid therapy
     Dosage: UNK UNK, QD (1000 MG/800 UI, FREQUENCY OF ADMINISTRATION 1/0/0, FOR 3 MONTHS)
     Route: 048
  16. Broth/vit D3 [Concomitant]
     Indication: Osteoporosis prophylaxis

REACTIONS (11)
  - Abdominal pain [Recovering/Resolving]
  - Diarrhoea [Recovering/Resolving]
  - Anal incontinence [Recovering/Resolving]
  - Flatulence [Recovering/Resolving]
  - Blood triglycerides increased [Recovering/Resolving]
  - Hyperglycaemia [Recovering/Resolving]
  - Glycosylated haemoglobin increased [Recovering/Resolving]
  - Crohn^s disease [Unknown]
  - Drug interaction [Recovering/Resolving]
  - Contraindication to medical treatment [Recovering/Resolving]
  - Product prescribing issue [Recovering/Resolving]
